FAERS Safety Report 10838530 (Version 1)
Quarter: 2015Q1

REPORT INFORMATION
  Report Type: Report from Study
  Country: US (occurrence: US)
  Receive Date: 20150219
  Receipt Date: 20150219
  Transmission Date: 20150721
  Serious: No
  Sender: FDA-Public Use
  Company Number: US-ABBVIE-14P-163-1225221-00

PATIENT
  Age: 59 Year
  Sex: Male
  Weight: 90.8 kg

DRUGS (5)
  1. LEVOXYL [Concomitant]
     Active Substance: LEVOTHYROXINE SODIUM
     Indication: HYPOTHYROIDISM
  2. CASODEX [Concomitant]
     Active Substance: BICALUTAMIDE
     Indication: BLOOD TESTOSTERONE ABNORMAL
  3. HUMIRA [Suspect]
     Active Substance: ADALIMUMAB
     Indication: PSORIATIC ARTHROPATHY
     Route: 058
     Dates: start: 2012, end: 201307
  4. HUMIRA [Suspect]
     Active Substance: ADALIMUMAB
     Route: 058
     Dates: start: 201312
  5. LUPRON [Concomitant]
     Active Substance: LEUPROLIDE ACETATE
     Indication: PROSTATE CANCER

REACTIONS (3)
  - Eye infection [Recovering/Resolving]
  - Hypersensitivity [Unknown]
  - Arthralgia [Unknown]

NARRATIVE: CASE EVENT DATE: 201306
